FAERS Safety Report 6099268-8 (Version None)
Quarter: 2009Q1

REPORT INFORMATION
  Report Type: 
  Country: None (occurrence: None)
  Receive Date: 20090303
  Receipt Date: 20090226
  Transmission Date: 20090719
  Serious: Yes (Other)
  Sender: FDA-Public Use
  Company Number: KR-JNJFOC-20090206689

PATIENT
  Age: 12 Year
  Sex: Male

DRUGS (7)
  1. CONCERTA [Suspect]
     Route: 048
  2. CONCERTA [Suspect]
     Dosage: HALF OF 27 MG TABLET
     Route: 048
  3. CONCERTA [Suspect]
     Route: 048
  4. CONCERTA [Suspect]
     Indication: ATTENTION DEFICIT/HYPERACTIVITY DISORDER
     Dosage: 18 MG TABLET AND 27 MG TABLET
     Route: 048
  5. GASTROINTESTINAL AGENT [Concomitant]
     Indication: GASTROINTESTINAL DISORDER
     Route: 065
  6. MEDICATION FOR RHINITIS [Concomitant]
     Indication: RHINITIS
     Route: 048
  7. TYLENOL [Concomitant]
     Indication: HEADACHE
     Route: 048

REACTIONS (6)
  - ANOREXIA [None]
  - ASTHENIA [None]
  - HEADACHE [None]
  - INCORRECT DOSE ADMINISTERED [None]
  - NAUSEA [None]
  - RHINITIS ALLERGIC [None]
